FAERS Safety Report 6933795-3 (Version None)
Quarter: 2010Q3

REPORT INFORMATION
  Report Type: 
  Country: None (occurrence: None)
  Receive Date: 20100820
  Receipt Date: 20100816
  Transmission Date: 20110219
  Serious: Yes (Hospitalization, Other)
  Sender: FDA-Public Use
  Company Number: JP-BAYER-201011680BYL

PATIENT
  Age: 89 Year
  Sex: Male
  Weight: 55 kg

DRUGS (12)
  1. NEXAVAR [Suspect]
     Indication: HEPATIC NEOPLASM MALIGNANT
     Dosage: TOTAL DAILY DOSE: 400 MG  UNIT DOSE: 200 MG
     Route: 048
     Dates: start: 20100212, end: 20100310
  2. NEXAVAR [Suspect]
     Dosage: UNIT DOSE: 200 MG
     Route: 048
     Dates: start: 20100311, end: 20100318
  3. NEXAVAR [Suspect]
     Dosage: UNIT DOSE: 200 MG
     Route: 048
     Dates: start: 20100514, end: 20100527
  4. URSO 250 [Concomitant]
     Route: 048
     Dates: start: 20061129
  5. PROMAC [Concomitant]
     Route: 048
     Dates: start: 20080204
  6. AMARYL [Concomitant]
     Route: 048
     Dates: start: 20040109
  7. VITAMEDIN [Concomitant]
     Route: 065
     Dates: start: 20090415
  8. ONON [Concomitant]
     Route: 048
     Dates: start: 20020731
  9. HOKUNALIN:TAPE [Concomitant]
     Route: 062
     Dates: start: 20020731
  10. THEO-DUR [Concomitant]
     Route: 048
     Dates: start: 20020731
  11. NIVADIL [Concomitant]
     Route: 048
     Dates: start: 20100212
  12. UREPEARL [Concomitant]
     Route: 061
     Dates: start: 20100212

REACTIONS (5)
  - ANAEMIA [None]
  - FATIGUE [None]
  - HYPERTENSION [None]
  - PALMAR-PLANTAR ERYTHRODYSAESTHESIA SYNDROME [None]
  - PNEUMONIA [None]
